FAERS Safety Report 25600941 (Version 1)
Quarter: 2025Q3

REPORT INFORMATION
  Report Type: Spontaneous
  Country: KR (occurrence: KR)
  Receive Date: 20250724
  Receipt Date: 20250724
  Transmission Date: 20251021
  Serious: Yes (Other)
  Sender: MYLAN
  Company Number: KR-MYLANLABS-2025M1062173

PATIENT
  Age: 68 Year
  Sex: Male

DRUGS (1)
  1. LYRICA [Suspect]
     Active Substance: PREGABALIN
     Indication: Angina unstable
     Dosage: 75 MILLIGRAM, QD

REACTIONS (3)
  - Delirium [Recovered/Resolved]
  - Dizziness [Recovered/Resolved]
  - Off label use [Unknown]
